FAERS Safety Report 6306444-5 (Version None)
Quarter: 2009Q3

REPORT INFORMATION
  Report Type: 
  Country: None (occurrence: None)
  Receive Date: 20090810
  Receipt Date: 20090804
  Transmission Date: 20100115
  Serious: Yes (Death, Other)
  Sender: FDA-Public Use
  Company Number: 2009SP013269

PATIENT
  Age: 55 Year
  Sex: Female

DRUGS (3)
  1. PEG-INTRON [Suspect]
     Indication: HEPATITIS C
     Dates: start: 20081201, end: 20090615
  2. EFFEXOR [Concomitant]
  3. CELEXA [Concomitant]

REACTIONS (12)
  - CHOLELITHIASIS [None]
  - DRUG SCREEN POSITIVE [None]
  - LETHARGY [None]
  - MYOCARDIAL INFARCTION [None]
  - NAUSEA [None]
  - OVERDOSE [None]
  - PANCREATIC DISORDER [None]
  - PNEUMONIA [None]
  - RENAL FAILURE [None]
  - SOMNOLENCE [None]
  - VOMITING [None]
  - WEIGHT DECREASED [None]
